FAERS Safety Report 5460990-5 (Version None)
Quarter: 2007Q3

REPORT INFORMATION
  Report Type: 
  Country: None (occurrence: None)
  Receive Date: 20070822
  Receipt Date: 20070509
  Transmission Date: 20080115
  Serious: Yes (Other)
  Sender: FDA-Public Use
  Company Number: 2007037506

PATIENT
  Age: 81 Year
  Sex: Female
  Weight: 86.2 kg

DRUGS (4)
  1. NORVASC [Suspect]
     Indication: HYPERTENSION
     Dosage: 10 MG (10 MG, QD)
     Dates: start: 19920101, end: 20070502
  2. AMLODIPINE [Suspect]
     Indication: HYPERTENSION
     Dosage: 10 MG (10 MG, QD)
     Dates: start: 20070503
  3. PROZAC [Concomitant]
  4. SYNTHROID [Concomitant]

REACTIONS (7)
  - ABDOMINAL PAIN UPPER [None]
  - DEPRESSION [None]
  - DYSGEUSIA [None]
  - FATIGUE [None]
  - FEELING ABNORMAL [None]
  - HEADACHE [None]
  - NAUSEA [None]
